FAERS Safety Report 7544282-6 (Version None)
Quarter: 2011Q2

REPORT INFORMATION
  Report Type: 
  Country: None (occurrence: None)
  Receive Date: 20110613
  Receipt Date: 20070914
  Transmission Date: 20111010
  Serious: Yes (Other)
  Sender: FDA-Public Use
  Company Number: PHFR2003IE01467

PATIENT
  Sex: Male
  Weight: 127 kg

DRUGS (3)
  1. FLURAZEPAM [Concomitant]
     Indication: SCHIZOPHRENIA
     Dosage: 30MG/NIGHT
     Route: 048
  2. CLOZAPINE [Suspect]
     Indication: SCHIZOPHRENIA
     Dosage: 12.5 MG, QD
     Route: 048
     Dates: start: 20030318, end: 20030328
  3. CHLORPROMAZINE [Concomitant]
     Indication: SCHIZOPHRENIA
     Dosage: 50 MG, TID
     Route: 048

REACTIONS (6)
  - ELECTROCARDIOGRAM QT PROLONGED [None]
  - PULMONARY FUNCTION TEST DECREASED [None]
  - ELECTROCARDIOGRAM ABNORMAL [None]
  - BUNDLE BRANCH BLOCK RIGHT [None]
  - OVERWEIGHT [None]
  - SINUS TACHYCARDIA [None]
